FAERS Safety Report 6885746-8 (Version None)
Quarter: 2010Q3

REPORT INFORMATION
  Report Type: 
  Country: None (occurrence: None)
  Receive Date: 20100729
  Receipt Date: 20080331
  Transmission Date: 20110219
  Serious: No
  Sender: FDA-Public Use
  Company Number: US-PFIZER INC-2008013694

PATIENT
  Sex: Female
  Weight: 86.363 kg

DRUGS (2)
  1. CELEBREX [Suspect]
     Indication: PLANTAR FASCIITIS
  2. PREMARIN [Concomitant]
     Indication: HORMONE REPLACEMENT THERAPY

REACTIONS (1)
  - DRUG INEFFECTIVE [None]
